FAERS Safety Report 6900466-9 (Version None)
Quarter: 2010Q3

REPORT INFORMATION
  Report Type: 
  Country: None (occurrence: None)
  Receive Date: 20100803
  Receipt Date: 20100722
  Transmission Date: 20110219
  Serious: Yes (Hospitalization)
  Sender: FDA-Public Use
  Company Number: FR-PFIZER INC-2010092275

PATIENT
  Age: 84 Year
  Sex: Male

DRUGS (11)
  1. ALDACTONE [Suspect]
     Dosage: 50 MG, 1X/DAY
     Route: 048
  2. LASIX [Interacting]
     Dosage: 40 MG, 1X/DAY
     Route: 048
  3. HEMIGOXINE NATIVELLE [Interacting]
     Indication: ATRIAL FIBRILLATION
     Dosage: 0.125 MG, 1X/DAY
     Route: 048
     Dates: end: 20100614
  4. AMLOR [Concomitant]
     Dosage: 5 MG, 1X/DAY
     Route: 048
  5. AVODART [Concomitant]
     Indication: BENIGN PROSTATIC HYPERPLASIA
     Dosage: 0.5 MG, 1X/DAY
     Route: 048
     Dates: end: 20100623
  6. LORAZEPAM [Concomitant]
     Dosage: 2.5 MG, 1X/DAY
     Route: 048
  7. NOVONORM [Concomitant]
     Indication: DIABETES MELLITUS
     Dosage: 0.5 MG, 2X/DAY
     Route: 048
  8. SINTROM [Concomitant]
     Indication: ATRIAL FIBRILLATION
     Dosage: ALTERNATE DOSAGE 0.5 OR 0.75 DF PER DAY
     Route: 048
     Dates: end: 20100614
  9. ZOCOR [Concomitant]
     Dosage: 20 MG, 1X/DAY
     Route: 048
  10. RAMIPRIL [Concomitant]
     Dosage: 2.5 MG, 2X/DAY
     Route: 048
  11. VOLTAREN EMULGEL ^NOVARTIS^ [Concomitant]
     Dosage: 1 DF, 3X/DAY
     Route: 003

REACTIONS (5)
  - ACCIDENTAL OVERDOSE [None]
  - BRADYCARDIA [None]
  - DEHYDRATION [None]
  - DRUG INTERACTION [None]
  - RENAL FUNCTION TEST ABNORMAL [None]
